FAERS Safety Report 10254717 (Version 1)
Quarter: 2014Q2

REPORT INFORMATION
  Report Type: Spontaneous
  Country: US (occurrence: US)
  Receive Date: 20140624
  Receipt Date: 20140624
  Transmission Date: 20141212
  Serious: No
  Sender: FDA-Public Use
  Company Number: US-BAYER-2014-093272

PATIENT
  Age: 52 Year
  Sex: Male

DRUGS (1)
  1. CLIMARA [Suspect]
     Indication: HORMONE REPLACEMENT THERAPY
     Dosage: UNK
     Dates: start: 201404

REACTIONS (4)
  - Off label use [None]
  - Off label use [None]
  - Product quality issue [None]
  - Product adhesion issue [None]
